FAERS Safety Report 13023720 (Version 1)
Quarter: 2016Q4

REPORT INFORMATION
  Report Type: Spontaneous
  Country: US (occurrence: US)
  Receive Date: 20161213
  Receipt Date: 20161213
  Transmission Date: 20170207
  Serious: No
  Sender: FDA-Public Use
  Company Number: None

PATIENT
  Age: 50 Year
  Sex: Female
  Weight: 78.3 kg

DRUGS (8)
  1. VICKS NYQUIL [Concomitant]
     Active Substance: ACETAMINOPHEN\DEXTROMETHORPHAN HYDROBROMIDE\DOXYLAMINE SUCCINATE
  2. LAMICTAL [Concomitant]
     Active Substance: LAMOTRIGINE
  3. ZYRTEC [Concomitant]
     Active Substance: CETIRIZINE HYDROCHLORIDE
  4. MELATONIN [Concomitant]
     Active Substance: MELATONIN
  5. ADVOCARE COREPLEX MULTIVITAMIN [Concomitant]
  6. BENADRYL [Concomitant]
     Active Substance: DIPHENHYDRAMINE HYDROCHLORIDE
  7. SIMVASTATIN. [Concomitant]
     Active Substance: SIMVASTATIN
  8. ESTARYLLA [Suspect]
     Active Substance: ETHINYL ESTRADIOL\NORGESTIMATE
     Indication: MOOD SWINGS
     Dosage: ?          QUANTITY:28 TABLET(S);?
     Route: 048
     Dates: start: 20161128, end: 20161212

REACTIONS (9)
  - Hypersomnia [None]
  - Depression [None]
  - Hypoaesthesia [None]
  - Drug ineffective [None]
  - Anxiety [None]
  - Insomnia [None]
  - Tachycardia [None]
  - Mental impairment [None]
  - Panic attack [None]

NARRATIVE: CASE EVENT DATE: 20161210
